FAERS Safety Report 17180124 (Version 1)
Quarter: 2019Q4

REPORT INFORMATION
  Report Type: Spontaneous
  Country: FR (occurrence: FR)
  Receive Date: 20191219
  Receipt Date: 20191219
  Transmission Date: 20200122
  Serious: Yes (Hospitalization)
  Sender: FDA-Public Use
  Company Number: FR-ASTRAZENECA-2019SF79667

PATIENT
  Age: 55 Year
  Sex: Male
  Weight: 53.4 kg

DRUGS (9)
  1. MOVICOL [Concomitant]
     Active Substance: POLYETHYLENE GLYCOL 3350\POTASSIUM CHLORIDE\SODIUM BICARBONATE\SODIUM CHLORIDE
  2. TERALITHE [Concomitant]
     Active Substance: LITHIUM CARBONATE
  3. ZOPICLONE [Concomitant]
     Active Substance: ZOPICLONE
  4. ORBENINE [Concomitant]
     Active Substance: CLOXACILLIN SODIUM
  5. QUETIAPINE. [Suspect]
     Active Substance: QUETIAPINE
     Indication: PSYCHOTIC DISORDER
     Route: 048
     Dates: start: 20190801, end: 20191106
  6. CLOPIXOL [Suspect]
     Active Substance: ZUCLOPENTHIXOL
     Indication: PSYCHOTIC DISORDER
     Route: 048
     Dates: start: 20191106, end: 20191109
  7. SULFARLEM [Concomitant]
     Active Substance: ANETHOLTRITHION
  8. SERESTA [Suspect]
     Active Substance: OXAZEPAM
     Indication: ANXIETY
     Dosage: 1 - 0.5 - 1 - 0.5
     Route: 048
     Dates: end: 20191109
  9. DIAZEPAM. [Concomitant]
     Active Substance: DIAZEPAM

REACTIONS (4)
  - Blood alkaline phosphatase increased [Recovering/Resolving]
  - Gamma-glutamyltransferase increased [Recovering/Resolving]
  - Jaundice [Recovering/Resolving]
  - Hepatocellular injury [Recovering/Resolving]

NARRATIVE: CASE EVENT DATE: 20191108
